FAERS Safety Report 25679180 (Version 1)
Quarter: 2025Q3

REPORT INFORMATION
  Report Type: Spontaneous
  Country: JP (occurrence: JP)
  Receive Date: 20250814
  Receipt Date: 20250814
  Transmission Date: 20251021
  Serious: Yes (Other)
  Sender: MERCK SHARP & DOHME LLC
  Company Number: JP-009507513-2317981

PATIENT
  Age: 6 Decade
  Sex: Male

DRUGS (4)
  1. KEYTRUDA [Suspect]
     Active Substance: PEMBROLIZUMAB
     Indication: Non-small cell lung cancer stage II
     Dosage: 200 MG ONCE EVERY 3 WEEKS
     Route: 041
     Dates: start: 20241030, end: 202501
  2. KEYTRUDA [Suspect]
     Active Substance: PEMBROLIZUMAB
     Indication: Non-small cell lung cancer stage II
     Dosage: 400 MG ONCE EVERY 6 WEEKS
     Route: 041
     Dates: start: 202505, end: 202507
  3. CISPLATIN [Concomitant]
     Active Substance: CISPLATIN
  4. GEMCITABINE [Concomitant]
     Active Substance: GEMCITABINE
     Dosage: 1000 MG/M2 ONCE EVERY 3 WEEKS
     Route: 041
     Dates: start: 20241030, end: 202501

REACTIONS (2)
  - Colon cancer [Unknown]
  - Arthralgia [Recovering/Resolving]

NARRATIVE: CASE EVENT DATE: 20250601
